FAERS Safety Report 5986339-7 (Version None)
Quarter: 2008Q4

REPORT INFORMATION
  Report Type: 
  Country: None (occurrence: None)
  Receive Date: 20081209
  Receipt Date: 20081201
  Transmission Date: 20090506
  Serious: Yes (Other)
  Sender: FDA-Public Use
  Company Number: IE-ABBOTT-08P-229-0490537-00

PATIENT
  Age: 4 Month

DRUGS (1)
  1. KLACID PEDIATRIC SUSPENSION [Suspect]
     Indication: DRUG USE FOR UNKNOWN INDICATION
     Dosage: 125MG PER 5MLS

REACTIONS (1)
  - RECTAL HAEMORRHAGE [None]
